FAERS Safety Report 17740305 (Version 2)
Quarter: 2020Q2

REPORT INFORMATION
  Report Type: Spontaneous
  Country: US (occurrence: US)
  Receive Date: 20200504
  Receipt Date: 20200507
  Transmission Date: 20200714
  Serious: No
  Sender: FDA-Public Use
  Company Number: US-PFIZER INC-2020177318

PATIENT
  Age: 53 Year
  Sex: Female

DRUGS (3)
  1. IBRANCE [Suspect]
     Active Substance: PALBOCICLIB
     Indication: VULVAL CANCER
     Dosage: 75 MG
  2. IBRANCE [Suspect]
     Active Substance: PALBOCICLIB
     Indication: SMALL CELL CARCINOMA
  3. IBRANCE [Suspect]
     Active Substance: PALBOCICLIB
     Indication: GENE MUTATION

REACTIONS (2)
  - Product use in unapproved indication [Unknown]
  - Off label use [Unknown]
